FAERS Safety Report 12155775 (Version 2)
Quarter: 2016Q1

REPORT INFORMATION
  Report Type: Spontaneous
  Country: RU (occurrence: RU)
  Receive Date: 20160307
  Receipt Date: 20160318
  Transmission Date: 20160526
  Serious: Yes (Death, Hospitalization)
  Sender: FDA-Public Use
  Company Number: RU-BIOMARINAP-RU-2016-109122

PATIENT
  Age: 22 Year
  Sex: Male

DRUGS (1)
  1. ALDURAZYME [Suspect]
     Active Substance: LARONIDASE
     Indication: MUCOPOLYSACCHARIDOSIS I
     Dosage: UNK
     Route: 042
     Dates: end: 20160112

REACTIONS (3)
  - Umbilical hernia repair [Unknown]
  - Cardiac failure [Unknown]
  - Pulmonary oedema [Fatal]
